FAERS Safety Report 21688231 (Version 1)
Quarter: 2022Q4

REPORT INFORMATION
  Report Type: Spontaneous
  Country: US (occurrence: US)
  Receive Date: 20221206
  Receipt Date: 20221206
  Transmission Date: 20230113
  Serious: Yes (Other)
  Sender: FDA-Public Use
  Company Number: US-SA-SAC20221206000164

PATIENT
  Age: 56 Year
  Sex: Male

DRUGS (1)
  1. DUPIXENT [Suspect]
     Active Substance: DUPILUMAB
     Dosage: 300 MG, QOW
     Route: 058
     Dates: start: 20201231

REACTIONS (5)
  - Arrhythmia [Recovering/Resolving]
  - Cardiac failure [Recovering/Resolving]
  - Hypertension [Recovering/Resolving]
  - Mitral valve replacement [Recovering/Resolving]
  - Cyst removal [Recovering/Resolving]

NARRATIVE: CASE EVENT DATE: 20221101
